FAERS Safety Report 11279354 (Version 1)
Quarter: 2015Q3

REPORT INFORMATION
  Report Type: Report from Study
  Country: DE (occurrence: DE)
  Receive Date: 20150717
  Receipt Date: 20150717
  Transmission Date: 20151125
  Serious: Yes (Hospitalization, Other)
  Sender: FDA-Public Use
  Company Number: DE-ABBVIE-15K-062-1424510-00

PATIENT
  Age: 41 Year
  Sex: Female
  Weight: 63 kg

DRUGS (18)
  1. REMICADE [Concomitant]
     Active Substance: INFLIXIMAB
     Dates: start: 20141117, end: 20141117
  2. QUANTALAN [Concomitant]
     Active Substance: CHOLESTYRAMINE
     Indication: GALLBLADDER DISORDER
     Route: 048
     Dates: start: 20110620
  3. QUANTALAN [Concomitant]
     Active Substance: CHOLESTYRAMINE
     Route: 048
     Dates: start: 20150504, end: 20150507
  4. QUANTALAN [Concomitant]
     Active Substance: CHOLESTYRAMINE
     Route: 048
     Dates: start: 2015
  5. REMICADE [Concomitant]
     Active Substance: INFLIXIMAB
     Indication: PRODUCT USED FOR UNKNOWN INDICATION
     Dates: start: 20140811, end: 20140811
  6. PANTOZOL [Concomitant]
     Active Substance: PANTOPRAZOLE SODIUM
     Indication: PROPHYLAXIS
  7. REMICADE [Concomitant]
     Active Substance: INFLIXIMAB
     Dates: start: 20140915, end: 20140915
  8. PANTOZOL [Concomitant]
     Active Substance: PANTOPRAZOLE SODIUM
     Indication: GASTRIC DISORDER
     Route: 048
     Dates: start: 20110623
  9. COLIFOAM [Concomitant]
     Active Substance: HYDROCORTISONE
     Indication: CROHN^S DISEASE
     Dates: start: 20150310, end: 20150410
  10. HUMIRA [Suspect]
     Active Substance: ADALIMUMAB
     Indication: CROHN^S DISEASE
     Route: 058
     Dates: start: 20110628, end: 201204
  11. REMICADE [Concomitant]
     Active Substance: INFLIXIMAB
     Dates: start: 20150302, end: 20150302
  12. QUANTALAN [Concomitant]
     Active Substance: CHOLESTYRAMINE
     Route: 048
     Dates: start: 20150611, end: 20150616
  13. COLIFOAM [Concomitant]
     Active Substance: HYDROCORTISONE
     Dates: start: 20150310
  14. REMICADE [Concomitant]
     Active Substance: INFLIXIMAB
     Dates: start: 20141222, end: 20141222
  15. REMICADE [Concomitant]
     Active Substance: INFLIXIMAB
     Dates: start: 20150127, end: 20150127
  16. PREDNISOLONE. [Concomitant]
     Active Substance: PREDNISOLONE
     Indication: CROHN^S DISEASE
     Dosage: WEEKLY REDUCTION OF 10MG
     Dates: start: 20150330, end: 20150511
  17. NOVAMIN [Concomitant]
     Active Substance: PROCHLORPERAZINE MALEATE
     Indication: PAIN
     Dates: start: 20150310, end: 20150312
  18. NOVAMIN [Concomitant]
     Active Substance: PROCHLORPERAZINE MALEATE
     Dates: start: 20150611, end: 20150616

REACTIONS (11)
  - Back pain [Unknown]
  - Intestinal anastomosis complication [Recovered/Resolved]
  - Pain [Unknown]
  - Excessive granulation tissue [Not Recovered/Not Resolved]
  - Ileus [Not Recovered/Not Resolved]
  - Vomiting [Unknown]
  - Postoperative wound complication [Unknown]
  - Ileal stenosis [Not Recovered/Not Resolved]
  - Rectal ulcer [Not Recovered/Not Resolved]
  - Coccydynia [Not Recovered/Not Resolved]
  - Enteritis [Not Recovered/Not Resolved]

NARRATIVE: CASE EVENT DATE: 201503
